FAERS Safety Report 6011342-0 (Version None)
Quarter: 2008Q4

REPORT INFORMATION
  Report Type: 
  Country: None (occurrence: None)
  Receive Date: 20081216
  Receipt Date: 20081203
  Transmission Date: 20090506
  Serious: Yes (Hospitalization, Other)
  Sender: FDA-Public Use
  Company Number: 236701J08USA

PATIENT
  Age: 66 Year
  Sex: Female
  Weight: 73 kg

DRUGS (5)
  1. REBIF [Suspect]
     Indication: MULTIPLE SCLEROSIS
     Dosage: 44 MCG, 3 IN 1 WEEKS, SUBCUTANEOUS
     Route: 058
     Dates: start: 20030402
  2. THYROID TAB [Concomitant]
  3. PROVIGIL [Concomitant]
  4. EFFEXOR [Concomitant]
  5. TYLENOL (COTYLENOL) [Concomitant]

REACTIONS (3)
  - JOINT HYPEREXTENSION [None]
  - JOINT SPRAIN [None]
  - MENISCUS LESION [None]
